FAERS Safety Report 13356181 (Version 3)
Quarter: 2020Q2

REPORT INFORMATION
  Report Type: Report from Study
  Country: US (occurrence: US)
  Receive Date: 20170321
  Receipt Date: 20200521
  Transmission Date: 20200713
  Serious: Yes (Other)
  Sender: FDA-Public Use
  Company Number: PHHY2017US043001

PATIENT
  Age: 54 Year
  Sex: Male

DRUGS (1)
  1. GILENYA [Suspect]
     Active Substance: FINGOLIMOD HYDROCHLORIDE
     Indication: MULTIPLE SCLEROSIS
     Dosage: UNK, QD
     Route: 048

REACTIONS (15)
  - Anxiety [Not Recovered/Not Resolved]
  - Hypoaesthesia [Recovered/Resolved]
  - Lymphocyte count increased [Unknown]
  - Micturition urgency [Not Recovered/Not Resolved]
  - Pain in extremity [Recovered/Resolved]
  - Mood swings [Not Recovered/Not Resolved]
  - Hypoaesthesia oral [Unknown]
  - Libido decreased [Not Recovered/Not Resolved]
  - Myocardial ischaemia [Recovered/Resolved]
  - Pollakiuria [Not Recovered/Not Resolved]
  - Disturbance in attention [Not Recovered/Not Resolved]
  - Tremor [Unknown]
  - Hypertension [Not Recovered/Not Resolved]
  - Balance disorder [Unknown]
  - Liver function test increased [Recovered/Resolved]

NARRATIVE: CASE EVENT DATE: 20161104
